FAERS Safety Report 12528062 (Version 2)
Quarter: 2016Q3

REPORT INFORMATION
  Report Type: Spontaneous
  Country: US (occurrence: US)
  Receive Date: 20160705
  Receipt Date: 20160913
  Transmission Date: 20161109
  Serious: No
  Sender: FDA-Public Use
  Company Number: US-PFIZER INC-2016231422

PATIENT
  Age: 50 Year
  Sex: Female

DRUGS (1)
  1. HYDROCORTISONE. [Suspect]
     Active Substance: HYDROCORTISONE
     Indication: HYPOPITUITARISM
     Dosage: UNK (10MG 5MG (2.5-5MG))
     Dates: start: 200608

REACTIONS (2)
  - Drug ineffective [Unknown]
  - Product use issue [Unknown]
